FAERS Safety Report 20379692 (Version 1)
Quarter: 2022Q1

REPORT INFORMATION
  Report Type: Spontaneous
  Country: US (occurrence: NL)
  Receive Date: 20220126
  Receipt Date: 20220126
  Transmission Date: 20220423
  Serious: Yes (Death, Other)
  Sender: FDA-Public Use
  Company Number: US-SLATE RUN PHARMACEUTICALS-22NL000870

PATIENT

DRUGS (7)
  1. VORICONAZOLE [Suspect]
     Active Substance: VORICONAZOLE
     Indication: Bronchopulmonary aspergillosis
     Dosage: UNK
  2. VORICONAZOLE [Suspect]
     Active Substance: VORICONAZOLE
     Indication: Aspergillus infection
  3. ISAVUCONAZOLE [Suspect]
     Active Substance: ISAVUCONAZOLE
     Indication: Mucormycosis
     Dosage: UNK
  4. AMPHOTERICIN B [Suspect]
     Active Substance: AMPHOTERICIN B
     Indication: Mucormycosis
     Dosage: UNK
     Route: 045
  5. DEXAMETHASONE [Concomitant]
     Active Substance: DEXAMETHASONE
     Indication: COVID-19
     Dosage: 6 MILLIGRAM, QD
     Route: 042
  6. OXYGEN [Concomitant]
     Active Substance: OXYGEN
     Indication: COVID-19
  7. TOCILIZUMAB [Concomitant]
     Active Substance: TOCILIZUMAB
     Indication: COVID-19
     Dosage: 800 MILLIGRAM, SINGLE

REACTIONS (11)
  - Death [Fatal]
  - Mucormycosis [Unknown]
  - Treatment failure [Unknown]
  - Hepatic failure [Unknown]
  - Respiratory disorder [Unknown]
  - Renal failure [Unknown]
  - Acute lung injury [Unknown]
  - Acute kidney injury [Unknown]
  - Haemoptysis [Unknown]
  - Arrhythmia [Unknown]
  - Thrombocytopenia [Unknown]
